FAERS Safety Report 9414230 (Version 1)
Quarter: 2013Q3

REPORT INFORMATION
  Report Type: Spontaneous
  Country: US (occurrence: US)
  Receive Date: 20130723
  Receipt Date: 20130723
  Transmission Date: 20140515
  Serious: No
  Sender: FDA-Public Use
  Company Number: US-009507513-1307USA007594

PATIENT
  Age: 25 Year
  Sex: Female

DRUGS (4)
  1. RIBAVIRIN [Suspect]
     Dosage: UNK
     Route: 048
     Dates: start: 20090612, end: 20100514
  2. PEGINTERFERON ALFA-2B [Suspect]
     Dosage: 80 MCG/WK
     Dates: start: 20090612, end: 20100507
  3. PRILOSEC [Concomitant]
     Indication: GASTROOESOPHAGEAL REFLUX DISEASE
     Dosage: 80 MG, UNK
  4. ZYRTEC [Concomitant]
     Indication: SEASONAL ALLERGY
     Dosage: 10 MG, UNK

REACTIONS (1)
  - Exposure during pregnancy [Unknown]
